FAERS Safety Report 5446345-8 (Version None)
Quarter: 2007Q3

REPORT INFORMATION
  Report Type: 
  Country: None (occurrence: None)
  Receive Date: 20070907
  Receipt Date: 20070830
  Transmission Date: 20080115
  Serious: Yes (Hospitalization)
  Sender: FDA-Public Use
  Company Number: A0677761A

PATIENT
  Age: 50 Year
  Sex: Female

DRUGS (2)
  1. LAMICTAL [Suspect]
     Indication: EPILEPSY
     Dosage: 100MG THREE TIMES PER DAY
     Route: 048
  2. ACIDOPHILUS [Concomitant]

REACTIONS (11)
  - ABSCESS [None]
  - BREATH ODOUR [None]
  - CONVERSION DISORDER [None]
  - DYSGEUSIA [None]
  - EATING DISORDER [None]
  - EMOTIONAL DISTRESS [None]
  - FEELING ABNORMAL [None]
  - HALLUCINATION, OLFACTORY [None]
  - NASAL ODOUR [None]
  - RETCHING [None]
  - SKIN ODOUR ABNORMAL [None]
